APPROVED DRUG PRODUCT: CARBOPLATIN
Active Ingredient: CARBOPLATIN
Strength: 450MG/45ML (10MG/ML)
Dosage Form/Route: INJECTABLE;INTRAVENOUS
Application: A077389 | Product #003
Applicant: TEVA PARENTERAL MEDICINES INC
Approved: Mar 30, 2007 | RLD: No | RS: No | Type: DISCN